FAERS Safety Report 4286148-3 (Version None)
Quarter: 2004Q1

REPORT INFORMATION
  Report Type: 
  Country: None (occurrence: None)
  Receive Date: 20040205
  Receipt Date: 20040127
  Transmission Date: 20041129
  Serious: Yes (Hospitalization)
  Sender: FDA-Public Use
  Company Number: FR-BRISTOL-MYERS SQUIBB COMPANY-12487823

PATIENT
  Age: 9 Month
  Sex: Female
  Weight: 11 kg

DRUGS (8)
  1. MUCOMYST [Suspect]
     Dosage: 100 MG/5 ML POWDER FOR ORAL SUSPENSION
     Route: 048
     Dates: start: 20031230
  2. BRONCHOKOD [Suspect]
     Dosage: SYRUP
     Route: 048
     Dates: start: 20031201
  3. CLAMOXYL [Concomitant]
  4. AUGMENTIN '125' [Concomitant]
  5. TIORFAN [Concomitant]
  6. FUNGIZONE [Concomitant]
  7. VENTOLIN [Concomitant]
  8. SOLU-MEDROL [Concomitant]

REACTIONS (4)
  - BRONCHIOLITIS [None]
  - MUSCLE SPASTICITY [None]
  - OTITIS MEDIA [None]
  - OTITIS MEDIA ACUTE [None]
